FAERS Safety Report 8701694 (Version 3)
Quarter: 2013Q4

REPORT INFORMATION
  Report Type: Spontaneous
  Country: US (occurrence: US)
  Receive Date: 20120803
  Receipt Date: 20131106
  Transmission Date: 20140711
  Serious: Yes (Hospitalization)
  Sender: FDA-Public Use
  Company Number: US-009507513-1207USA011577

PATIENT
  Age: 54 Year
  Sex: Male

DRUGS (3)
  1. VICTRELIS [Suspect]
     Dosage: UNK
  2. PEGINTRON [Suspect]
     Dosage: UNK
  3. SARAFEM [Concomitant]

REACTIONS (4)
  - Disorientation [Recovering/Resolving]
  - Catatonia [Recovering/Resolving]
  - Amnesia [Recovering/Resolving]
  - Hyperhidrosis [Recovering/Resolving]
